FAERS Safety Report 12162236 (Version 1)
Quarter: 2016Q1

REPORT INFORMATION
  Report Type: Report from Study
  Country: CA (occurrence: CA)
  Receive Date: 20160309
  Receipt Date: 20160309
  Transmission Date: 20160526
  Serious: Yes (Death, Other)
  Sender: FDA-Public Use
  Company Number: CA-ROCHE-1490740

PATIENT
  Sex: Female

DRUGS (6)
  1. PREDNISONE. [Suspect]
     Active Substance: PREDNISONE
     Indication: PRODUCT USED FOR UNKNOWN INDICATION
     Route: 065
  2. ACTEMRA [Suspect]
     Active Substance: TOCILIZUMAB
     Indication: RHEUMATOID ARTHRITIS
     Dosage: STOP DATE: 2015/2016 NOS
     Route: 058
  3. ACTONEL [Concomitant]
     Active Substance: RISEDRONATE SODIUM
  4. TYLENOL WITH CODEINE [Concomitant]
     Active Substance: ACETAMINOPHEN\CODEINE PHOSPHATE
  5. INSULIN [Concomitant]
     Active Substance: INSULIN NOS
  6. HYDROXYZINE [Concomitant]
     Active Substance: HYDROXYZINE\HYDROXYZINE HYDROCHLORIDE

REACTIONS (4)
  - Rheumatoid arthritis [Unknown]
  - Hypoaesthesia [Not Recovered/Not Resolved]
  - Cataract [Not Recovered/Not Resolved]
  - Throat cancer [Fatal]

NARRATIVE: CASE EVENT DATE: 2014
